FAERS Safety Report 19799309 (Version 3)
Quarter: 2021Q4

REPORT INFORMATION
  Report Type: Report from Study
  Country: US (occurrence: US)
  Receive Date: 20210907
  Receipt Date: 20211130
  Transmission Date: 20220303
  Serious: Yes (Hospitalization, Other)
  Sender: FDA-Public Use
  Company Number: US-TAKEDA-2021TUS035411

PATIENT
  Sex: Male
  Weight: 175 kg

DRUGS (10)
  1. HUMAN IMMUNOGLOBULIN G [Suspect]
     Active Substance: HUMAN IMMUNOGLOBULIN G
     Indication: Polymyositis
     Dosage: 1000 MILLIGRAM/KILOGRAM
     Route: 042
     Dates: start: 20210520
  2. HUMAN IMMUNOGLOBULIN G [Suspect]
     Active Substance: HUMAN IMMUNOGLOBULIN G
     Dosage: 1000 MILLIGRAM/KILOGRAM
     Route: 042
     Dates: start: 20210520
  3. ACETAMINOPHEN [Concomitant]
     Active Substance: ACETAMINOPHEN
  4. DIPHENHYDRAMINE [Concomitant]
     Active Substance: DIPHENHYDRAMINE
  5. HEPARIN [Concomitant]
     Active Substance: HEPARIN SODIUM
  6. LIDOCAINE [Concomitant]
     Active Substance: LIDOCAINE
  7. SODIUM CHLORIDE [Concomitant]
     Active Substance: SODIUM CHLORIDE
  8. EPINEPHRINE [Concomitant]
     Active Substance: EPINEPHRINE
  9. CELLCEPT [Concomitant]
     Active Substance: MYCOPHENOLATE MOFETIL
  10. LASIX [Concomitant]
     Active Substance: FUROSEMIDE

REACTIONS (9)
  - Pneumonia [Unknown]
  - Respiratory disorder [Unknown]
  - Eating disorder [Unknown]
  - Body temperature increased [Unknown]
  - Chills [Unknown]
  - Pain in extremity [Unknown]
  - Fatigue [Unknown]
  - Off label use [Unknown]
  - Incorrect drug administration rate [Unknown]
